FAERS Safety Report 23303416 (Version 1)
Quarter: 2023Q4

REPORT INFORMATION
  Report Type: Spontaneous
  Country: US (occurrence: US)
  Receive Date: 20231215
  Receipt Date: 20231215
  Transmission Date: 20240110
  Serious: Yes (Hospitalization)
  Sender: FDA-Public Use
  Company Number: US-TEVA-VS-3134797

PATIENT
  Age: 44 Year

DRUGS (1)
  1. HYDROCORTISONE [Suspect]
     Active Substance: HYDROCORTISONE
     Indication: Adrenal insufficiency
     Dosage: STRESS DOSE WAS GIVEN
     Route: 065

REACTIONS (3)
  - Psychotic disorder [Recovered/Resolved]
  - Catatonia [Recovered/Resolved]
  - Suicidal ideation [Recovered/Resolved]
